FAERS Safety Report 7744629-1 (Version None)
Quarter: 2011Q3

REPORT INFORMATION
  Report Type: 
  Country: None (occurrence: None)
  Receive Date: 20110912
  Receipt Date: 20110909
  Transmission Date: 20111222
  Serious: Yes (Other)
  Sender: FDA-Public Use
  Company Number: US-PFIZER INC-2011213034

PATIENT
  Age: 47 Year
  Sex: Female

DRUGS (3)
  1. OXYCODONE [Concomitant]
     Dosage: UNK
  2. LYRICA [Suspect]
     Dosage: UNK
  3. OXYMORPHONE HYDROCHLORIDE [Concomitant]
     Dosage: UNK

REACTIONS (6)
  - INSOMNIA [None]
  - OEDEMA PERIPHERAL [None]
  - MIGRAINE [None]
  - DEPRESSION [None]
  - HEADACHE [None]
  - ANXIETY [None]
